FAERS Safety Report 17006845 (Version 1)
Quarter: 2019Q4

REPORT INFORMATION
  Report Type: Spontaneous
  Country: US (occurrence: US)
  Receive Date: 20191106
  Receipt Date: 20191106
  Transmission Date: 20200122
  Serious: Yes (Life-Threatening, Hospitalization, Disabling)
  Sender: FDA-Public Use
  Company Number: None

PATIENT
  Age: 25 Year
  Sex: Female
  Weight: 56.25 kg

DRUGS (1)
  1. INJECTAFER [Suspect]
     Active Substance: FERRIC CARBOXYMALTOSE
     Indication: IRON DEFICIENCY ANAEMIA
     Dosage: ?          OTHER FREQUENCY:SINGLE TIME;?
     Route: 042
     Dates: start: 20191007, end: 20191014

REACTIONS (7)
  - Fatigue [None]
  - Paraesthesia [None]
  - Nausea [None]
  - Blood phosphorus decreased [None]
  - Cardiac flutter [None]
  - Micturition disorder [None]
  - Dizziness [None]

NARRATIVE: CASE EVENT DATE: 20191017
